FAERS Safety Report 25494006 (Version 1)
Quarter: 2025Q2

REPORT INFORMATION
  Report Type: Spontaneous
  Country: US (occurrence: None)
  Receive Date: 20250627
  Receipt Date: 20250627
  Transmission Date: 20250716
  Serious: Yes (Hospitalization)
  Sender: FDA-CTU
  Company Number: None

PATIENT
  Age: 37 Year
  Sex: Male

DRUGS (2)
  1. DALFAMPRIDINE [Suspect]
     Active Substance: DALFAMPRIDINE
     Indication: Multiple sclerosis
     Dosage: FREQUENCY : EVERY 12 HOURS;?
  2. OCREVUS [Suspect]
     Active Substance: OCRELIZUMAB

REACTIONS (1)
  - COVID-19 [None]

NARRATIVE: CASE EVENT DATE: 20250526
